FAERS Safety Report 5433207-5 (Version None)
Quarter: 2007Q3

REPORT INFORMATION
  Report Type: 
  Country: None (occurrence: None)
  Receive Date: 20070831
  Receipt Date: 20070823
  Transmission Date: 20080115
  Serious: Yes (Hospitalization)
  Sender: FDA-Public Use
  Company Number: US-JNJFOC-20070805832

PATIENT
  Age: 55 Year
  Sex: Male

DRUGS (2)
  1. INFLIXIMAB [Suspect]
     Dosage: INFUSION #4
     Route: 042
  2. INFLIXIMAB [Suspect]
     Indication: RHEUMATOID ARTHRITIS
     Dosage: 3 INFUSIONS, DATES UNKNOWN
     Route: 042

REACTIONS (1)
  - COLITIS ULCERATIVE [None]
